FAERS Safety Report 7746492-1 (Version None)
Quarter: 2011Q3

REPORT INFORMATION
  Report Type: 
  Country: None (occurrence: None)
  Receive Date: 20110913
  Receipt Date: 20110901
  Transmission Date: 20111222
  Serious: Yes (Other)
  Sender: FDA-Public Use
  Company Number: DE-UCBSA-040893

PATIENT
  Age: 15 Year
  Sex: Female

DRUGS (2)
  1. VIMPAT [Suspect]
     Indication: CONVULSION
     Dosage: 2 X 100 MG
  2. PHENYTOIN [Suspect]
     Indication: CONVULSION

REACTIONS (2)
  - VISUAL IMPAIRMENT [None]
  - DRUG INEFFECTIVE [None]
